FAERS Safety Report 5887676-7 (Version None)
Quarter: 2008Q3

REPORT INFORMATION
  Report Type: 
  Country: None (occurrence: None)
  Receive Date: 20080916
  Receipt Date: 20080904
  Transmission Date: 20090109
  Serious: Yes (Death, Hospitalization)
  Sender: FDA-Public Use
  Company Number: WAES 0807USA05642

PATIENT
  Age: 60 Year
  Sex: Female
  Weight: 47.6277 kg

DRUGS (9)
  1. CAP VORINOSTAT 300 MG [Suspect]
     Indication: BILE DUCT CANCER
     Dosage: 300 MG/DAILY/PO
     Route: 048
     Dates: start: 20080718, end: 20080725
  2. TAB SORAFENIB 400 MG [Suspect]
     Indication: RENAL CELL CARCINOMA
     Dosage: 400 MG/BID/PO
     Route: 048
     Dates: start: 20080718, end: 20080725
  3. ADVIL [Concomitant]
  4. DILAUDID [Concomitant]
  5. MS CONTIN [Concomitant]
  6. TYLENOL (CAPLET) [Concomitant]
  7. ZOVIRAX [Concomitant]
  8. ATENOLOL [Concomitant]
  9. LORAZEPAM [Concomitant]

REACTIONS (18)
  - ANAEMIA [None]
  - ATELECTASIS [None]
  - BILE DUCT OBSTRUCTION [None]
  - CHILLS [None]
  - CHOLANGITIS [None]
  - DISEASE PROGRESSION [None]
  - DYSGEUSIA [None]
  - ELECTROCARDIOGRAM QT PROLONGED [None]
  - METASTATIC NEOPLASM [None]
  - NAUSEA [None]
  - OEDEMA PERIPHERAL [None]
  - PAIN [None]
  - PLATELET COUNT ABNORMAL [None]
  - PLEURAL EFFUSION [None]
  - PNEUMONIA [None]
  - PORTAL VEIN OCCLUSION [None]
  - PYREXIA [None]
  - VOMITING [None]
